FAERS Safety Report 6712968-9 (Version None)
Quarter: 2010Q2

REPORT INFORMATION
  Report Type: 
  Country: None (occurrence: None)
  Receive Date: 20100506
  Receipt Date: 20100426
  Transmission Date: 20101027
  Serious: Yes (Death)
  Sender: FDA-Public Use
  Company Number: FR-TEVA-232945ISR

PATIENT
  Age: 9 Year
  Sex: Female

DRUGS (10)
  1. FLUCONAZOLE [Suspect]
     Dates: start: 20011022, end: 20011031
  2. FLUCONAZOLE [Suspect]
     Dates: start: 20011112, end: 20011124
  3. FLUCONAZOLE [Suspect]
     Route: 042
  4. FLUCYTOSINE [Suspect]
     Dosage: 150 MG/KG/DAY
     Route: 042
  5. VORICONAZOLE [Suspect]
     Route: 042
     Dates: start: 20011221
  6. CASPOFUNGIN [Suspect]
  7. ANTIBIOTICS [Concomitant]
     Dates: start: 20011101, end: 20011112
  8. ANTIBIOTICS [Concomitant]
     Dates: start: 20011124, end: 20011210
  9. AMPHOTERICIN B [Concomitant]
     Dates: start: 20011101, end: 20011112
  10. AMPHOTERICIN B [Concomitant]
     Dates: start: 20011124, end: 20011210

REACTIONS (1)
  - MULTIPLE-DRUG RESISTANCE [None]
